FAERS Safety Report 22317582 (Version 1)
Quarter: 2023Q2

REPORT INFORMATION
  Report Type: Spontaneous
  Country: CN (occurrence: CN)
  Receive Date: 20230515
  Receipt Date: 20230515
  Transmission Date: 20230722
  Serious: Yes (Hospitalization, Other)
  Sender: FDA-Public Use
  Company Number: None

PATIENT
  Age: 18 Year
  Sex: Female

DRUGS (3)
  1. LAMOTRIGINE [Interacting]
     Active Substance: LAMOTRIGINE
     Indication: Bipolar I disorder
     Dosage: 25 MG, 2 TIMES PER DAY
     Dates: start: 20220714, end: 20220725
  2. VALPROATE MAGNESIUM [Interacting]
     Active Substance: VALPROATE MAGNESIUM
     Indication: Bipolar I disorder
     Dosage: 500 MG, 2 TIMES PER DAY
     Dates: start: 20220714, end: 20220727
  3. PEROSPIRONE [Concomitant]
     Active Substance: PEROSPIRONE
     Indication: Bipolar I disorder
     Dosage: 4 MG, 2 TIMES PER DAY
     Dates: start: 20220714

REACTIONS (5)
  - Rash maculo-papular [Recovered/Resolved]
  - Lymphadenopathy [Recovering/Resolving]
  - Drug interaction [Recovering/Resolving]
  - Nausea [Unknown]
  - Vomiting [Unknown]

NARRATIVE: CASE EVENT DATE: 20220701
